FAERS Safety Report 5198445-8 (Version None)
Quarter: 2006Q4

REPORT INFORMATION
  Report Type: 
  Country: None (occurrence: None)
  Receive Date: 20061228
  Receipt Date: 20061228
  Transmission Date: 20070319
  Serious: No
  Sender: FDA-Public Use
  Company Number: None

PATIENT
  Age: 92 Year
  Sex: Male
  Weight: 64.8644 kg

DRUGS (7)
  1. DEMEROL [Suspect]
     Indication: PREOPERATIVE CARE
     Dosage: 50 MG IV X 1 DOSE
     Route: 042
  2. ASPIRIN [Concomitant]
  3. ALTACE [Concomitant]
  4. FLOMAX [Concomitant]
  5. LOPRESSOR [Concomitant]
  6. LOVASTATIN [Concomitant]
  7. PEPCID [Concomitant]

REACTIONS (3)
  - BLOOD PRESSURE INCREASED [None]
  - DEPRESSED LEVEL OF CONSCIOUSNESS [None]
  - TREMOR [None]
